FAERS Safety Report 26125530 (Version 1)
Quarter: 2025Q4

REPORT INFORMATION
  Report Type: Spontaneous
  Country: PH (occurrence: None)
  Receive Date: 20251205
  Receipt Date: 20251205
  Transmission Date: 20260118
  Serious: Yes (Other)
  Sender: ORGANON
  Company Number: PH-MLMSERVICE-20251121-PI721790-00105-1

PATIENT
  Age: 9 Year
  Sex: Male

DRUGS (2)
  1. BETAMETHASONE DIPROPIONATE [Suspect]
     Active Substance: BETAMETHASONE DIPROPIONATE
     Indication: Dermatitis atopic
     Dosage: UNK
  2. CLOBETASOL PROPIONATE [Suspect]
     Active Substance: CLOBETASOL PROPIONATE
     Indication: Dermatitis atopic
     Dosage: UNK

REACTIONS (3)
  - Pseudo Cushing^s syndrome [Recovering/Resolving]
  - Secondary adrenocortical insufficiency [Recovered/Resolved]
  - Dermatitis atopic [Unknown]
